FAERS Safety Report 9597240 (Version 1)
Quarter: 2013Q4

REPORT INFORMATION
  Report Type: Spontaneous
  Country: US (occurrence: US)
  Receive Date: 20131004
  Receipt Date: 20131004
  Transmission Date: 20140711
  Serious: No
  Sender: FDA-Public Use
  Company Number: US-AMGEN-USASP2013018210

PATIENT
  Age: 61 Year
  Sex: Male
  Weight: 114.29 kg

DRUGS (16)
  1. ENBREL [Suspect]
     Indication: RHEUMATOID ARTHRITIS
     Dosage: UNK
     Dates: start: 1999, end: 2005
  2. FOLIC ACID [Concomitant]
     Dosage: UNK
  3. HYDROCODONE [Concomitant]
     Dosage: UNK
  4. CELEBREX [Concomitant]
     Dosage: UNK
  5. METHOTREXATE [Concomitant]
     Dosage: UNK
  6. OMEPRAZOLE [Concomitant]
     Dosage: UNK
  7. PREDNISONE [Concomitant]
     Dosage: UNK
  8. FLOMAX                             /00889901/ [Concomitant]
     Dosage: UNK
  9. MICARDIS [Concomitant]
     Dosage: UNK
  10. PREVIDENT [Concomitant]
     Dosage: UNK
  11. BIOTENE                            /03475601/ [Concomitant]
     Dosage: UNK
  12. MULTIVITAMINS, PLAIN [Concomitant]
     Dosage: UNK
  13. VITAMIN C                          /00008001/ [Concomitant]
     Dosage: UNK
  14. CALCIUM WITH VITAMIN D             /00944201/ [Concomitant]
     Dosage: UNK
  15. FLUOXETINE [Concomitant]
     Dosage: UNK
  16. CYCLOBENZAPRINE [Concomitant]
     Dosage: UNK

REACTIONS (1)
  - Therapeutic response decreased [Unknown]
